FAERS Safety Report 18559402 (Version 1)
Quarter: 2020Q4

REPORT INFORMATION
  Report Type: Spontaneous
  Country: US (occurrence: US)
  Receive Date: 20201127
  Receipt Date: 20201127
  Transmission Date: 20210114
  Serious: Yes (Other)
  Sender: FDA-Public Use
  Company Number: None

PATIENT
  Age: 56 Year
  Sex: Female
  Weight: 54.9 kg

DRUGS (8)
  1. NURTEC OD [Concomitant]
  2. AJOVY [Suspect]
     Active Substance: FREMANEZUMAB-VFRM
     Indication: MIGRAINE
     Route: 058
  3. ZOLMITRIPTAN? [Concomitant]
  4. VIT C, D [Concomitant]
  5. ZONISAMIDE. [Concomitant]
     Active Substance: ZONISAMIDE
  6. BIOTIN [Concomitant]
     Active Substance: BIOTIN
  7. MAGNESIUM [Concomitant]
     Active Substance: MAGNESIUM
  8. MULTI VITAMIN [Concomitant]
     Active Substance: VITAMINS

REACTIONS (4)
  - Alopecia [None]
  - Arthralgia [None]
  - Myalgia [None]
  - Constipation [None]

NARRATIVE: CASE EVENT DATE: 20200902
